FAERS Safety Report 12252715 (Version 1)
Quarter: 2016Q2

REPORT INFORMATION
  Report Type: Spontaneous
  Country: US (occurrence: US)
  Receive Date: 20160411
  Receipt Date: 20160411
  Transmission Date: 20160815
  Serious: No
  Sender: FDA-Public Use
  Company Number: US-PFIZER INC-2016203322

PATIENT
  Age: 71 Year
  Sex: Female
  Weight: 45.81 kg

DRUGS (3)
  1. TYLENOL [Concomitant]
     Active Substance: ACETAMINOPHEN
  2. ALAVERT ALLERGY [Suspect]
     Active Substance: LORATADINE
     Indication: RHINITIS ALLERGIC
     Dosage: MORE THAN ONE DISINTEGRATING TABLET A DAY
  3. ASPIRIN /00002701/ [Concomitant]
     Active Substance: ASPIRIN

REACTIONS (4)
  - Drug effect decreased [Unknown]
  - Hypertension [Unknown]
  - Product use issue [Unknown]
  - Drug tolerance [Unknown]

NARRATIVE: CASE EVENT DATE: 20160406
